FAERS Safety Report 7618133-5 (Version None)
Quarter: 2011Q3

REPORT INFORMATION
  Report Type: 
  Country: None (occurrence: None)
  Receive Date: 20110718
  Receipt Date: 20110624
  Transmission Date: 20111222
  Serious: Yes (Death)
  Sender: FDA-Public Use
  Company Number: US-GLAXOSMITHKLINE-A0788649A

PATIENT
  Sex: Male

DRUGS (1)
  1. AVANDIA [Suspect]
     Indication: PRODUCT USED FOR UNKNOWN INDICATION
     Route: 065
     Dates: start: 20020112, end: 20070816

REACTIONS (4)
  - CARDIAC FAILURE CONGESTIVE [None]
  - PLEURAL EFFUSION [None]
  - CORONARY ARTERY DISEASE [None]
  - CEREBROVASCULAR ACCIDENT [None]
